FAERS Safety Report 16224958 (Version 5)
Quarter: 2020Q1

REPORT INFORMATION
  Report Type: Spontaneous
  Country: US (occurrence: US)
  Receive Date: 20190422
  Receipt Date: 20200131
  Transmission Date: 20200409
  Serious: Yes (Other)
  Sender: FDA-Public Use
  Company Number: US-ALEXION PHARMACEUTICALS INC.-A201905737

PATIENT
  Sex: Female

DRUGS (1)
  1. SOLIRIS [Suspect]
     Active Substance: ECULIZUMAB
     Indication: PRODUCT USED FOR UNKNOWN INDICATION
     Route: 065

REACTIONS (7)
  - Tremor [Not Recovered/Not Resolved]
  - Nasopharyngitis [Unknown]
  - Abdominal pain [Unknown]
  - Alopecia [Recovering/Resolving]
  - Renal injury [Unknown]
  - Migraine [Unknown]
  - Hypertension [Unknown]

NARRATIVE: CASE EVENT DATE: 20190411
